FAERS Safety Report 7929651-4 (Version None)
Quarter: 2011Q4

REPORT INFORMATION
  Report Type: 
  Country: None (occurrence: None)
  Receive Date: 20111121
  Receipt Date: 20111117
  Transmission Date: 20120403
  Serious: Yes (Hospitalization)
  Sender: FDA-Public Use
  Company Number: US-PFIZER INC-US-WYE-H14316410

PATIENT
  Sex: Female
  Weight: 73.469 kg

DRUGS (11)
  1. CELEBREX [Suspect]
     Indication: NEUROPATHY PERIPHERAL
     Dosage: 200 MG, 1X/DAY
     Route: 048
  2. CELEBREX [Suspect]
     Indication: NECK PAIN
  3. PROMETRIUM [Concomitant]
     Dosage: UNK
  4. CELEBREX [Suspect]
     Indication: NEURALGIA
     Dosage: UNK
     Route: 048
  5. PREMPRO [Concomitant]
     Dosage: 0.6 MG, 1X/DAY
  6. CELEBREX [Suspect]
     Indication: CARPAL TUNNEL SYNDROME
  7. MEDROXYPROGESTERONE [Concomitant]
     Route: 065
  8. CELEBREX [Suspect]
     Indication: SPINAL COLUMN STENOSIS
     Dosage: 100 MG, 1X/DAY
     Route: 048
     Dates: start: 20080101
  9. LYRICA [Suspect]
     Indication: NEUROPATHY PERIPHERAL
     Dosage: 50 MG, 1X/DAY
     Route: 048
     Dates: end: 20111116
  10. PREMPRO [Concomitant]
     Dosage: 0.3 MG, UNK
  11. MEDROXYPROGESTERONE [Concomitant]
     Route: 048

REACTIONS (1)
  - GASTRIC DISORDER [None]
